FAERS Safety Report 6226278-X (Version None)
Quarter: 2009Q2

REPORT INFORMATION
  Report Type: 
  Country: None (occurrence: None)
  Receive Date: 20090612
  Receipt Date: 20090511
  Transmission Date: 20091009
  Serious: No
  Sender: FDA-Public Use
  Company Number: US-ABBOTT-09P-163-0572824-00

PATIENT
  Sex: Male
  Weight: 87.168 kg

DRUGS (9)
  1. HUMIRA [Suspect]
     Indication: PSORIASIS
     Dosage: (80 MG DAY ONE)
     Route: 058
     Dates: start: 20090414
  2. HUMIRA [Suspect]
     Dosage: DAY 8
     Route: 058
  3. HUMIRA [Suspect]
     Dosage: DAY 15
     Route: 058
  4. HUMIRA [Suspect]
     Route: 058
  5. AVODART [Concomitant]
     Indication: PROSTATOMEGALY
     Route: 048
  6. FLOMAX [Concomitant]
     Indication: PROSTATOMEGALY
     Route: 048
  7. LIPITOR [Concomitant]
     Indication: BLOOD CHOLESTEROL INCREASED
     Route: 048
  8. HUMALOG [Concomitant]
     Indication: TYPE 2 DIABETES MELLITUS
     Route: 058
  9. LANTUS INSULIN SOLO STAR [Concomitant]
     Indication: TYPE 2 DIABETES MELLITUS
     Route: 058

REACTIONS (1)
  - INJECTION SITE PAIN [None]
